FAERS Safety Report 15717755 (Version 1)
Quarter: 2018Q4

REPORT INFORMATION
  Report Type: Spontaneous
  Country: US (occurrence: US)
  Receive Date: 20181129
  Receipt Date: 20181129
  Transmission Date: 20190205
  Serious: No
  Sender: FDA-Public Use
  Company Number: None

PATIENT

DRUGS (2)
  1. DOPAMINE HCL [Suspect]
     Active Substance: DOPAMINE HYDROCHLORIDE
     Dosage: ?          OTHER STRENGTH:3200 MCG/ML;?
  2. DOPAMINE HCL [Suspect]
     Active Substance: DOPAMINE HYDROCHLORIDE
     Dosage: ?          OTHER STRENGTH:1600 MCG/ML;?

REACTIONS (3)
  - Product label confusion [None]
  - Product packaging confusion [None]
  - Intercepted product selection error [None]
